FAERS Safety Report 7630047-3 (Version None)
Quarter: 2011Q3

REPORT INFORMATION
  Report Type: 
  Country: None (occurrence: None)
  Receive Date: 20110722
  Receipt Date: 20110713
  Transmission Date: 20111222
  Serious: Yes (Other)
  Sender: FDA-Public Use
  Company Number: CA-JNJFOC-20110706438

PATIENT
  Sex: Female
  Weight: 96 kg

DRUGS (3)
  1. REMICADE [Suspect]
     Indication: PSORIATIC ARTHROPATHY
     Route: 042
     Dates: start: 20091221
  2. METHOTREXATE [Concomitant]
     Route: 058
  3. MANY OTHER UNSPECIFIED MEDICATIONS [Concomitant]

REACTIONS (1)
  - NEOPLASM SKIN [None]
